FAERS Safety Report 7601876-7 (Version None)
Quarter: 2011Q3

REPORT INFORMATION
  Report Type: 
  Country: None (occurrence: None)
  Receive Date: 20110711
  Receipt Date: 20110704
  Transmission Date: 20111222
  Serious: Yes (Other)
  Sender: FDA-Public Use
  Company Number: GB-ABBOTT-11P-167-0836515-00

PATIENT
  Sex: Male

DRUGS (3)
  1. PROTON PUMP INHIBITOR [Concomitant]
     Indication: PRODUCT USED FOR UNKNOWN INDICATION
  2. PREZISTA [Suspect]
     Indication: HIV INFECTION
     Dosage: 800MG, 1 IN 1 DAY, 100/800
     Route: 065
     Dates: start: 20110617
  3. RITONAVIR [Suspect]
     Indication: HIV INFECTION
     Dosage: UNSPECIFIED
     Route: 065
     Dates: start: 20110617

REACTIONS (1)
  - SUPRAVENTRICULAR TACHYCARDIA [None]
